FAERS Safety Report 8091462-X (Version None)
Quarter: 2012Q1

REPORT INFORMATION
  Report Type: 
  Country: None (occurrence: None)
  Receive Date: 20120129
  Receipt Date: 20111108
  Transmission Date: 20120608
  Serious: No
  Sender: FDA-Public Use
  Company Number: US-ABBOTT-09P-163-0593872-00

PATIENT
  Sex: Female
  Weight: 77.18 kg

DRUGS (8)
  1. METFORMIN HCL [Concomitant]
     Indication: DIABETES MELLITUS
  2. HUMIRA [Suspect]
     Indication: CROHN'S DISEASE
     Route: 058
     Dates: start: 20080301, end: 20100201
  3. PENTASA [Concomitant]
     Indication: CROHN'S DISEASE
  4. ENTOCORT EC [Concomitant]
     Indication: PRODUCT USED FOR UNKNOWN INDICATION
  5. BUDESONIDE [Concomitant]
     Indication: CROHN'S DISEASE
     Dates: start: 20110501
  6. HUMIRA [Suspect]
     Route: 058
     Dates: start: 20100201
  7. PREVACID [Concomitant]
     Indication: GASTROOESOPHAGEAL REFLUX DISEASE
  8. GLIMEPIRIDE [Concomitant]
     Indication: DIABETES MELLITUS

REACTIONS (6)
  - PYREXIA [None]
  - CROHN'S DISEASE [None]
  - ABDOMINAL PAIN [None]
  - MUSCLE SPASMS [None]
  - DRUG EFFECT DECREASED [None]
  - DIARRHOEA [None]
